FAERS Safety Report 6432712-2 (Version None)
Quarter: 2009Q4

REPORT INFORMATION
  Report Type: 
  Country: None (occurrence: None)
  Receive Date: 20091105
  Receipt Date: 20091021
  Transmission Date: 20100525
  Serious: Yes (Hospitalization, Other)
  Sender: FDA-Public Use
  Company Number: IDA-00279

PATIENT
  Age: 69 Year
  Sex: Female

DRUGS (10)
  1. PROPRANOLOL [Suspect]
     Dosage: 80 MG,
  2. CITALOPRAM HYDROBROMIDE [Suspect]
     Dosage: 20 MG,
  3. ACETAMINOPHEN W/ CODEINE [Suspect]
  4. DICLOFENAC [Suspect]
     Dosage: 50 MG,
  5. DOMPERIDONE [Suspect]
     Dosage: 10 MG,
  6. FUROSEMIDE [Suspect]
     Dosage: 20MG,
  7. LOPERAMIDE [Suspect]
     Dosage: 2MG,
  8. LOPRAZOLAM [Suspect]
     Dosage: 1 MG,
  9. RISPERIDONE [Suspect]
     Dosage: .5 MG,
  10. ZOPICLONE [Suspect]
     Dosage: 7.5 MG,

REACTIONS (15)
  - ABDOMINAL PAIN [None]
  - ABDOMINAL TENDERNESS [None]
  - CACHEXIA [None]
  - CARDIAC MURMUR [None]
  - CHOLELITHIASIS [None]
  - CLOSTRIDIUM DIFFICILE COLITIS [None]
  - DECREASED APPETITE [None]
  - DEHYDRATION [None]
  - DIARRHOEA [None]
  - DUODENAL ULCER [None]
  - GASTROINTESTINAL DISORDER [None]
  - LARGE INTESTINAL ULCER [None]
  - MALAISE [None]
  - PALLOR [None]
  - VOMITING [None]
